FAERS Safety Report 6444348-8 (Version None)
Quarter: 2009Q4

REPORT INFORMATION
  Report Type: 
  Country: None (occurrence: None)
  Receive Date: 20091118
  Receipt Date: 20091113
  Transmission Date: 20100525
  Serious: Yes (Hospitalization)
  Sender: FDA-Public Use
  Company Number: US-ELI_LILLY_AND_COMPANY-US200910004229

PATIENT
  Sex: Male

DRUGS (2)
  1. HUMULIN N [Suspect]
     Dosage: UNK, UNK
     Dates: start: 20081101
  2. PROGRAF [Concomitant]
     Dates: start: 20070101

REACTIONS (3)
  - ASTHENIA [None]
  - LISTLESS [None]
  - RENAL FAILURE [None]
